FAERS Safety Report 18432172 (Version 1)
Quarter: 2020Q4

REPORT INFORMATION
  Report Type: Report from Study
  Country: US (occurrence: US)
  Receive Date: 20201027
  Receipt Date: 20201027
  Transmission Date: 20210114
  Serious: Yes (Other)
  Sender: FDA-Public Use
  Company Number: US-JNJFOC-20201027848

PATIENT
  Age: 53 Year
  Sex: Male

DRUGS (3)
  1. SPRAVATO [Suspect]
     Active Substance: ESKETAMINE
     Indication: DEPRESSION
     Dosage: 56 MG, 1 DOSE TOTAL
     Dates: start: 20200925, end: 20200925
  2. SPRAVATO [Suspect]
     Active Substance: ESKETAMINE
     Dosage: 84 MG, 3 DOSES TOTAL
     Dates: start: 20200930, end: 20201009
  3. SPRAVATO [Suspect]
     Active Substance: ESKETAMINE
     Dosage: MOST RECENT TREATMENT
     Dates: start: 20201014, end: 20201014

REACTIONS (3)
  - Sedation [Recovered/Resolved]
  - Hypertension [Recovered/Resolved]
  - Dissociation [Recovered/Resolved]

NARRATIVE: CASE EVENT DATE: 20201014
